FAERS Safety Report 15040873 (Version 6)
Quarter: 2018Q4

REPORT INFORMATION
  Report Type: Other
  Country: CA (occurrence: CA)
  Receive Date: 20180620
  Receipt Date: 20181206
  Transmission Date: 20190204
  Serious: Yes (Hospitalization)
  Sender: FDA-Public Use
  Company Number: CA-HLSUS-2018-CA-000952

PATIENT
  Age: 77 Year
  Sex: Male

DRUGS (1)
  1. CLOZARIL [Suspect]
     Active Substance: CLOZAPINE
     Dosage: 150MG QD
     Route: 048
     Dates: start: 20140902, end: 201805

REACTIONS (6)
  - Toxicity to various agents [None]
  - Lung infection [Unknown]
  - Cystitis [Unknown]
  - Tremor [None]
  - Hyperhidrosis [None]
  - Neuroleptic malignant syndrome [Unknown]

NARRATIVE: CASE EVENT DATE: 20180501
